FAERS Safety Report 8236869-2 (Version None)
Quarter: 2012Q1

REPORT INFORMATION
  Report Type: 
  Country: None (occurrence: None)
  Receive Date: 20120327
  Receipt Date: 20120130
  Transmission Date: 20120608
  Serious: Yes (Disabling)
  Sender: FDA-Public Use
  Company Number: US-GLAXOSMITHKLINE-A0963757A

PATIENT
  Age: 83 Year
  Sex: Male

DRUGS (16)
  1. DILANTIN [Concomitant]
  2. NEXIUM [Concomitant]
  3. GEODON [Concomitant]
  4. LAMICTAL XR [Suspect]
     Indication: CONVULSION
     Dosage: 50MG PER DAY
     Route: 048
     Dates: start: 20120101
  5. NYSTATIN OINTMENT [Concomitant]
  6. SIMVASTATIN [Concomitant]
  7. ATIVAN [Concomitant]
  8. METOPROLOL SUCCINATE [Concomitant]
  9. EXTRA STRENGTH TYLENOL [Concomitant]
  10. NYSTATIN [Concomitant]
  11. AMLODIPINE [Concomitant]
  12. PRANDIN [Concomitant]
  13. CELEXA [Concomitant]
  14. VERSED [Concomitant]
  15. BLEPHAMIDE [Concomitant]
  16. UNKNOWN [Concomitant]

REACTIONS (1)
  - SOMNOLENCE [None]
